FAERS Safety Report 25523176 (Version 1)
Quarter: 2025Q3

REPORT INFORMATION
  Report Type: Spontaneous
  Country: US (occurrence: US)
  Receive Date: 20250707
  Receipt Date: 20250707
  Transmission Date: 20251021
  Serious: Yes (Other)
  Sender: GLENMARK
  Company Number: US-GLENMARK PHARMACEUTICALS-2025GMK101567

PATIENT
  Age: 66 Year
  Sex: Female

DRUGS (8)
  1. LITHIUM [Suspect]
     Active Substance: LITHIUM
     Indication: Schizoaffective disorder bipolar type
     Dosage: 150 MILLIGRAM, QD (150 MG NIGHTLY)
     Route: 065
  2. LITHIUM [Suspect]
     Active Substance: LITHIUM
     Dosage: 300 MILLIGRAM, QD (INCREASED AND CONTINUED AT 300 MG NIGHTLY)
     Route: 065
  3. CLOZAPINE [Concomitant]
     Active Substance: CLOZAPINE
     Indication: Schizoaffective disorder bipolar type
     Route: 065
  4. CLOZAPINE [Concomitant]
     Active Substance: CLOZAPINE
     Indication: Neutrophil count decreased
     Route: 065
  5. CLOZAPINE [Concomitant]
     Active Substance: CLOZAPINE
     Dosage: 375 MILLIGRAM, QD (NIGHTLY)
     Route: 065
  6. CLOZAPINE [Concomitant]
     Active Substance: CLOZAPINE
     Dosage: 400 MILLIGRAM, QD (NIGHTLY)
     Route: 065
  7. CLOZAPINE [Concomitant]
     Active Substance: CLOZAPINE
     Dosage: 25 MILLIGRAM, QD (NIGHTLY) GRADUALLY DECREASED
     Route: 065
  8. CLOZAPINE [Concomitant]
     Active Substance: CLOZAPINE
     Dosage: 200 MILLIGRAM, QD (SUBSEQUENTLY TITRATED BACK UP TO 200 MG NIGHTLY)
     Route: 065

REACTIONS (3)
  - Polydipsia psychogenic [Unknown]
  - Urine osmolarity decreased [Unknown]
  - Hyponatraemia [Unknown]
